FAERS Safety Report 21041662 (Version 2)
Quarter: 2024Q1

REPORT INFORMATION
  Report Type: Spontaneous
  Country: HU (occurrence: HU)
  Receive Date: 20220705
  Receipt Date: 20240311
  Transmission Date: 20240409
  Serious: Yes (Death, Life-Threatening, Hospitalization, Other)
  Sender: FDA-Public Use
  Company Number: HU-BRISTOL-MYERS SQUIBB COMPANY-2022-068359

PATIENT
  Age: 61 Year
  Sex: Male

DRUGS (2)
  1. NIVOLUMAB [Suspect]
     Active Substance: NIVOLUMAB
     Indication: Clear cell renal cell carcinoma
     Dosage: DOSE : 66MG IPILIMUMAB +198MG NIVOLUMAB; FREQUENCY : 1 DOSE ONLY
     Dates: start: 20220520, end: 20220520
  2. IPILIMUMAB [Suspect]
     Active Substance: IPILIMUMAB
     Indication: Clear cell renal cell carcinoma
     Dosage: DOSE : 66MG IPILIMUMAB +198MG NIVOLUMAB; FREQUENCY : 1 DOSE ONLY
     Dates: start: 20220520, end: 20220520

REACTIONS (5)
  - Myasthenia gravis [Fatal]
  - Carotid artery occlusion [Recovered/Resolved]
  - Cerebral haemorrhage [Unknown]
  - Myositis [Unknown]
  - Hypertension [Recovered/Resolved]

NARRATIVE: CASE EVENT DATE: 20220602
